FAERS Safety Report 24154551 (Version 3)
Quarter: 2024Q3

REPORT INFORMATION
  Report Type: Spontaneous
  Country: US (occurrence: US)
  Receive Date: 20240731
  Receipt Date: 20240905
  Transmission Date: 20241016
  Serious: Yes (Death, Other)
  Sender: NOVO NORDISK
  Company Number: US-NOVOPROD-1260212

PATIENT
  Age: 70 Year
  Sex: Male

DRUGS (1)
  1. LEVEMIR [Suspect]
     Active Substance: INSULIN DETEMIR
     Indication: Type 2 diabetes mellitus
     Dosage: 100 IU
     Route: 058
     Dates: start: 202102, end: 20230117

REACTIONS (5)
  - Coronary artery embolism [Fatal]
  - Myocardial infarction [Fatal]
  - Coronary artery disease [Fatal]
  - Cardiac arrest [Fatal]
  - Device occlusion [Unknown]

NARRATIVE: CASE EVENT DATE: 20230117
